FAERS Safety Report 5499364-X (Version None)
Quarter: 2007Q4

REPORT INFORMATION
  Report Type: 
  Country: None (occurrence: None)
  Receive Date: 20071026
  Receipt Date: 20071019
  Transmission Date: 20080405
  Serious: Yes (Hospitalization)
  Sender: FDA-Public Use
  Company Number: A0609921A

PATIENT
  Age: 36 Year
  Sex: Female
  Weight: 44 kg

DRUGS (3)
  1. LAPATINIB [Suspect]
     Route: 048
     Dates: start: 20051221, end: 20060510
  2. FEMARA [Concomitant]
     Dates: start: 20060412
  3. ZOLADEX [Concomitant]
     Dates: start: 20060412

REACTIONS (6)
  - EPISTAXIS [None]
  - HEPATIC ENZYME INCREASED [None]
  - HEPATIC FUNCTION ABNORMAL [None]
  - JAUNDICE [None]
  - THROMBOCYTOPENIA [None]
  - VOMITING [None]
